FAERS Safety Report 14199987 (Version 1)
Quarter: 2017Q4

REPORT INFORMATION
  Report Type: Spontaneous
  Country: US (occurrence: US)
  Receive Date: 20171117
  Receipt Date: 20171117
  Transmission Date: 20180321
  Serious: Yes (Other)
  Sender: FDA-Public Use
  Company Number: US-JNJFOC-20171110443

PATIENT
  Age: 50 Year
  Sex: Female
  Weight: 74.84 kg

DRUGS (3)
  1. INVOKAMET XR [Suspect]
     Active Substance: CANAGLIFLOZIN\METFORMIN HYDROCHLORIDE
     Indication: TYPE 2 DIABETES MELLITUS
     Dosage: DOSE: 50/1000 MG
     Route: 048
     Dates: start: 201709, end: 20171109
  2. INVOKANA [Suspect]
     Active Substance: CANAGLIFLOZIN
     Indication: TYPE 2 DIABETES MELLITUS
     Route: 048
     Dates: start: 201707, end: 20170903
  3. LOVASTATIN. [Concomitant]
     Active Substance: LOVASTATIN
     Indication: BLOOD CHOLESTEROL ABNORMAL
     Route: 048

REACTIONS (7)
  - Diabetes mellitus inadequate control [Unknown]
  - Insomnia [Recovered/Resolved]
  - Discomfort [Unknown]
  - Skin burning sensation [Recovered/Resolved]
  - Heart rate irregular [Recovered/Resolved]
  - Inappropriate schedule of drug administration [Unknown]
  - Hyperhidrosis [Recovered/Resolved]

NARRATIVE: CASE EVENT DATE: 201707
